FAERS Safety Report 9471863 (Version 3)
Quarter: 2013Q3

REPORT INFORMATION
  Report Type: Spontaneous
  Country: FR (occurrence: FR)
  Receive Date: 20130822
  Receipt Date: 20130926
  Transmission Date: 20140515
  Serious: Yes (Other)
  Sender: FDA-Public Use
  Company Number: FR-ROCHE-1264811

PATIENT
  Age: 76 Year
  Sex: Male
  Weight: 70 kg

DRUGS (8)
  1. MABTHERA [Suspect]
     Indication: AUTOIMMUNE HAEMOLYTIC ANAEMIA
     Route: 042
     Dates: start: 201303, end: 201304
  2. MABTHERA [Suspect]
     Route: 041
     Dates: start: 20130301, end: 20130321
  3. BACTRIM FORTE [Concomitant]
     Route: 048
     Dates: start: 201303
  4. CORDARONE [Concomitant]
     Route: 048
  5. LOVENOX [Concomitant]
     Indication: ARRHYTHMIA
     Dosage: 0.6 TWICE
     Route: 058
     Dates: start: 201305
  6. LOVENOX [Concomitant]
     Indication: ATRIAL FIBRILLATION
  7. CORTANCYL [Concomitant]
     Indication: AUTOIMMUNE HAEMOLYTIC ANAEMIA
     Route: 048
     Dates: start: 201302
  8. ZELITREX [Concomitant]
     Route: 048
     Dates: start: 201305

REACTIONS (1)
  - Histiocytosis haematophagic [Recovered/Resolved]
